FAERS Safety Report 9592981 (Version 1)
Quarter: 2013Q3

REPORT INFORMATION
  Report Type: Spontaneous
  Country: US (occurrence: None)
  Receive Date: 20130930
  Receipt Date: 20130930
  Transmission Date: 20140515
  Serious: Yes (Other)
  Sender: FDA-Public Use
  Company Number: 1000047278

PATIENT
  Age: 77 Year
  Sex: Female

DRUGS (5)
  1. LINZESS [Suspect]
     Indication: CONSTIPATION
     Dates: start: 20130716
  2. SYNTHROID (LEVOTHYROXINE SODIUM) [Concomitant]
  3. AMBIEN CR (ZOLPIDEM TARTRATE) [Concomitant]
  4. OXYCONTIN (OXYCODONE HYDROCHLORIDE) [Concomitant]
  5. VALIUM (DIAZEPAM) [Concomitant]

REACTIONS (1)
  - Pruritus [None]
